FAERS Safety Report 8977999 (Version 13)
Quarter: 2014Q2

REPORT INFORMATION
  Report Type: Spontaneous
  Country: JP (occurrence: JP)
  Receive Date: 20121220
  Receipt Date: 20140520
  Transmission Date: 20141212
  Serious: Yes (Disabling, Other)
  Sender: FDA-Public Use
  Company Number: JP-VERTEX PHARMACEUTICALS INC.-2012-026425

PATIENT
  Age: 62 Year
  Sex: Male

DRUGS (7)
  1. TELAVIC [Suspect]
     Indication: CHRONIC HEPATITIS C
     Dosage: 2250 MG, QD
     Route: 048
     Dates: start: 20121016, end: 20121204
  2. REBETOL [Suspect]
     Indication: CHRONIC HEPATITIS C
     Dosage: 800 MG, QD
     Route: 048
     Dates: start: 20121016, end: 20121204
  3. PEGINTRON [Suspect]
     Indication: CHRONIC HEPATITIS C
     Dosage: 1.5 ?G/KG, QW
     Route: 058
     Dates: start: 20121016, end: 20121205
  4. AMARYL [Concomitant]
     Dosage: 1 MG, QD
     Route: 048
  5. URSO [Concomitant]
     Dosage: 600 MG, QD
     Route: 048
  6. ENSURE H [Concomitant]
     Dosage: 250 ML, QD
     Route: 048
     Dates: start: 20121107, end: 20121204
  7. PROMAC [Concomitant]
     Dosage: 150 MG, QD
     Route: 048
     Dates: start: 20121205, end: 20121212

REACTIONS (3)
  - Spastic paraplegia [Not Recovered/Not Resolved]
  - Rhabdomyolysis [Recovered/Resolved with Sequelae]
  - Rash [Unknown]
